FAERS Safety Report 16711752 (Version 1)
Quarter: 2019Q3

REPORT INFORMATION
  Report Type: Spontaneous
  Country: US (occurrence: US)
  Receive Date: 20190816
  Receipt Date: 20190816
  Transmission Date: 20191004
  Serious: No
  Sender: FDA-Public Use
  Company Number: US-SA-2019SA224785

PATIENT
  Sex: Female

DRUGS (21)
  1. DUPILUMAB [Suspect]
     Active Substance: DUPILUMAB
  2. IBUPROFEN. [Concomitant]
     Active Substance: IBUPROFEN
  3. MUCINEX [Concomitant]
     Active Substance: GUAIFENESIN
  4. VITAMIN C [Concomitant]
     Active Substance: ASCORBIC ACID
  5. ALBUTEROL SULFATE. [Concomitant]
     Active Substance: ALBUTEROL SULFATE
  6. SYNTHROID [Concomitant]
     Active Substance: LEVOTHYROXINE SODIUM
  7. MAGNESIUM [Concomitant]
     Active Substance: MAGNESIUM
  8. ALBUTEROL [SALBUTAMOL] [Concomitant]
     Active Substance: ALBUTEROL
  9. ASPIRIN [ACETYLSALICYLIC ACID] [Concomitant]
     Active Substance: ASPIRIN
  10. WELLBUTRIN [Concomitant]
     Active Substance: BUPROPION HYDROCHLORIDE
  11. ADVAIR HFA [Concomitant]
     Active Substance: FLUTICASONE PROPIONATE\SALMETEROL XINAFOATE
  12. QVAR [Concomitant]
     Active Substance: BECLOMETHASONE DIPROPIONATE
  13. ALUPENT [Concomitant]
     Active Substance: METAPROTERENOL SULFATE
  14. CRESTOR [Concomitant]
     Active Substance: ROSUVASTATIN CALCIUM
  15. ALBUTEROL [SALBUTAMOL] [Concomitant]
     Active Substance: ALBUTEROL
  16. GABAPENTIN. [Concomitant]
     Active Substance: GABAPENTIN
  17. SINGULAIR [Concomitant]
     Active Substance: MONTELUKAST SODIUM
  18. ENLIVEN [Concomitant]
  19. CARDIZEM [Concomitant]
     Active Substance: DILTIAZEM HYDROCHLORIDE
  20. VITAMIN D [VITAMIN D NOS] [Concomitant]
     Active Substance: VITAMIN D NOS
  21. COQ10 [UBIDECARENONE] [Concomitant]
     Active Substance: UBIDECARENONE

REACTIONS (4)
  - Pain [Unknown]
  - Nausea [Unknown]
  - Paraesthesia [Unknown]
  - Malaise [Unknown]
